FAERS Safety Report 8890242 (Version 2)
Quarter: 2012Q4

REPORT INFORMATION
  Report Type: 
  Country: BR (occurrence: BR)
  Receive Date: 20121107
  Receipt Date: 20121217
  Transmission Date: 20130627
  Serious: No
  Sender: FDA-Public Use
  Company Number: BR-AMGEN-BRASP2012070546

PATIENT
  Age: 65 Year
  Sex: Female
  Weight: 62 kg

DRUGS (6)
  1. ENBREL [Suspect]
     Indication: PSORIASIS
     Dosage: 50 mg, qwk
     Route: 058
     Dates: start: 201205
  2. CITALOR [Concomitant]
     Dosage: 1 tablet of 10 mg, 1x/day
     Route: 048
  3. GLIFAGE [Concomitant]
     Dosage: 2 tablets of 500 mg, daily (2x/day)
     Route: 048
  4. LOSARTAN [Concomitant]
     Dosage: 1 tablet of 50 mg, daily (1x/day)
     Route: 048
  5. CORDILOX [Concomitant]
     Dosage: 1 tablet of 5 mg, daily (1x/day)
     Route: 048
  6. OMEPRAZOL                          /00661201/ [Concomitant]
     Dosage: 1 tablet of 20 mg, daily (1x/day)
     Route: 048

REACTIONS (2)
  - Parotitis [Recovering/Resolving]
  - Nasopharyngitis [Recovered/Resolved]
